FAERS Safety Report 25259093 (Version 1)
Quarter: 2025Q2

REPORT INFORMATION
  Report Type: Spontaneous
  Country: CN (occurrence: CN)
  Receive Date: 20250501
  Receipt Date: 20250501
  Transmission Date: 20250716
  Serious: Yes (Other)
  Sender: NOVARTIS
  Company Number: CN-002147023-NVSC2025CN070488

PATIENT
  Age: 14 Year
  Sex: Female
  Weight: 47 kg

DRUGS (16)
  1. CYCLOSPORINE [Suspect]
     Active Substance: CYCLOSPORINE
     Indication: Graft versus host disease
     Dosage: 60 MG, QD (60 MG QD GRADUALLY INCREASED TO 100 MG QD) (IVGTT)
     Route: 050
     Dates: start: 2023, end: 2023
  2. CYCLOSPORINE [Suspect]
     Active Substance: CYCLOSPORINE
     Dosage: 100 MG, QD (IVGTT) (DAY 10)
     Route: 050
     Dates: start: 2023, end: 2023
  3. CYCLOSPORINE [Suspect]
     Active Substance: CYCLOSPORINE
     Dosage: 80 MG, QD (IVGTT) (DAY 11)
     Route: 050
     Dates: start: 2023, end: 2023
  4. CYCLOSPORINE [Suspect]
     Active Substance: CYCLOSPORINE
     Dosage: 25 MG, QD (DAY 18)
     Route: 065
     Dates: start: 2023, end: 2023
  5. CYCLOSPORINE [Suspect]
     Active Substance: CYCLOSPORINE
     Dosage: 50 MG, QD (DAY 19/20)
     Route: 065
     Dates: start: 2023
  6. MYCOPHENOLATE SODIUM [Suspect]
     Active Substance: MYCOPHENOLATE SODIUM
     Indication: Prophylaxis against graft versus host disease
     Dosage: 720 MG, BID ((D1 ~ D18))
     Route: 048
     Dates: start: 2023
  7. FLUDARABINE [Concomitant]
     Active Substance: FLUDARABINE PHOSPHATE
     Indication: Symptomatic treatment
     Route: 065
     Dates: start: 20230930
  8. BUSULFAN [Concomitant]
     Active Substance: BUSULFAN
     Indication: Symptomatic treatment
     Route: 065
     Dates: start: 2023
  9. LAPINE T-LYMPHOCYTE IMMUNE GLOBULIN [Concomitant]
     Active Substance: LAPINE T-LYMPHOCYTE IMMUNE GLOBULIN
     Indication: Prophylaxis against graft versus host disease
     Dosage: 10 MG, QD (KG-1 IVGTT QD) ((D-4 TO D-1))
     Route: 042
     Dates: start: 2023
  10. MYCOPHENOLATE MOFETIL [Concomitant]
     Active Substance: MYCOPHENOLATE MOFETIL
     Indication: Prophylaxis against graft versus host disease
     Dosage: 1 G, BID (D19 ~ D46)
     Route: 048
     Dates: start: 2023
  11. METHOTREXATE [Concomitant]
     Active Substance: METHOTREXATE
     Indication: Prophylaxis against graft versus host disease
     Route: 041
     Dates: start: 2023, end: 2023
  12. METHOTREXATE [Concomitant]
     Active Substance: METHOTREXATE
     Route: 041
     Dates: start: 2023
  13. CEFOPERAZONE SODIUM\SULBACTAM SODIUM [Concomitant]
     Active Substance: CEFOPERAZONE SODIUM\SULBACTAM SODIUM
     Indication: Infection
     Dosage: 3 G, Q8H (IVGTT)
     Route: 050
     Dates: start: 2023
  14. VANCOMYCIN [Concomitant]
     Active Substance: VANCOMYCIN
     Indication: Infection
     Dosage: 1000 MG, Q12H (IVGTT)
     Route: 050
     Dates: start: 2023, end: 2023
  15. MEROPENEM [Concomitant]
     Active Substance: MEROPENEM
     Indication: Infection
     Dosage: 500 MG, Q8H (IVGTT)
     Route: 050
     Dates: start: 2023
  16. FUROSEMIDE [Concomitant]
     Active Substance: FUROSEMIDE
     Indication: Polyuria
     Dosage: 20 MG, QD (IVGTT)
     Route: 050
     Dates: start: 2023

REACTIONS (2)
  - Posterior reversible encephalopathy syndrome [Unknown]
  - Acute kidney injury [Unknown]

NARRATIVE: CASE EVENT DATE: 20230101
